FAERS Safety Report 8185016-4 (Version None)
Quarter: 2012Q1

REPORT INFORMATION
  Report Type: 
  Country: None (occurrence: None)
  Receive Date: 20120301
  Receipt Date: 20111203
  Transmission Date: 20120608
  Serious: Yes (Hospitalization)
  Sender: FDA-Public Use
  Company Number: ADL-2011-00132

PATIENT
  Age: 56 Year
  Sex: Male
  Weight: 137.2 kg

DRUGS (12)
  1. PSYLLIUM (PLANTAGO AFRA) (PLANTAGO AFRA) [Concomitant]
  2. LIDOCAINE [Concomitant]
  3. FENTANYL CITRATE [Suspect]
     Indication: BREAKTHROUGH PAIN
     Dosage: FOUR TIMES PER DAY AS NEEDED, NASAL
     Route: 045
     Dates: start: 20080228
  4. ALBUTEROL (SALBUTAMOL) (SALBUTAMOL) [Concomitant]
  5. MORPHINE SULFATE [Concomitant]
  6. VARDENAFIL (VARDENAFIL) (TABLETS) [Concomitant]
  7. BUDESONIDE/FORMOTER (FORMOTEROL, FUMARATE) (FORMOTEROL FUMARATE) [Concomitant]
  8. WARFARIN SODIUM [Concomitant]
  9. FLUTICASONE PROPIONATE [Concomitant]
  10. OXYCODONE/ACETAMINOPHEN (PARACETAMOL) (TABLETS) (PARACETAMOL) [Concomitant]
  11. NITROFURANTOIN (NITROFURANTOIN) (CAPSULES) (NITROFURANTOIN) [Concomitant]
  12. TIOTROPIUM (TIOTROPIUM) (CAPSULES) [Concomitant]

REACTIONS (6)
  - PULMONARY EMBOLISM [None]
  - ESCHERICHIA TEST POSITIVE [None]
  - STREPTOCOCCUS TEST POSITIVE [None]
  - PYELONEPHRITIS [None]
  - ENTEROCOCCUS TEST POSITIVE [None]
  - URINARY TRACT INFECTION [None]
